FAERS Safety Report 7485464-1 (Version None)
Quarter: 2011Q2

REPORT INFORMATION
  Report Type: 
  Country: None (occurrence: None)
  Receive Date: 20110517
  Receipt Date: 20110513
  Transmission Date: 20111010
  Serious: Yes (Hospitalization, Disabling)
  Sender: FDA-Public Use
  Company Number: PHHO2010PL05380

PATIENT
  Sex: Female
  Weight: 52 kg

DRUGS (4)
  1. OLANZAPINE [Concomitant]
     Indication: PARANOIA
     Dosage: 5 MG, UNK
     Dates: start: 20100618, end: 20101231
  2. GILENYA [Suspect]
     Indication: MULTIPLE SCLEROSIS
     Dosage: DOSE BLINDED
     Route: 048
     Dates: start: 20090706, end: 20100420
  3. SERTRALINE HYDROCHLORIDE [Concomitant]
     Indication: PARANOIA
     Dosage: 50 MG, UNK
     Dates: start: 20100817, end: 20101231
  4. GILENYA [Suspect]
     Dosage: DOUBLE BLIND
     Route: 048
     Dates: start: 20101014

REACTIONS (6)
  - DELUSION [None]
  - MULTIPLE SCLEROSIS [None]
  - SUICIDAL IDEATION [None]
  - PARANOIA [None]
  - DEPRESSION [None]
  - PSYCHOTIC DISORDER [None]
